FAERS Safety Report 8604834-9 (Version None)
Quarter: 2012Q3

REPORT INFORMATION
  Report Type: 
  Country: None (occurrence: None)
  Receive Date: 20120820
  Receipt Date: 20120809
  Transmission Date: 20120928
  Serious: Yes (Hospitalization)
  Sender: FDA-Public Use
  Company Number: US-JNJFOC-20120805970

PATIENT
  Sex: Female
  Weight: 78.93 kg

DRUGS (6)
  1. INVEGA SUSTENNA [Suspect]
     Indication: BIPOLAR DISORDER
     Route: 030
     Dates: start: 20120401
  2. INVEGA SUSTENNA [Suspect]
     Route: 030
     Dates: start: 20120613
  3. INVEGA SUSTENNA [Suspect]
     Route: 030
     Dates: start: 20110701, end: 20120401
  4. INVEGA SUSTENNA [Suspect]
     Route: 030
     Dates: start: 20110901, end: 20120301
  5. INVEGA [Suspect]
     Indication: BIPOLAR DISORDER
     Route: 048
     Dates: start: 20120401
  6. TEGRETOL [Concomitant]
     Indication: BIPOLAR DISORDER
     Route: 048
     Dates: start: 20110701

REACTIONS (8)
  - TOOTHACHE [None]
  - OVERDOSE [None]
  - TREATMENT NONCOMPLIANCE [None]
  - HEADACHE [None]
  - TOOTH EXTRACTION [None]
  - MUSCLE TWITCHING [None]
  - HOSPITALISATION [None]
  - HYPERHIDROSIS [None]
